FAERS Safety Report 18417502 (Version 1)
Quarter: 2020Q4

REPORT INFORMATION
  Report Type: Spontaneous
  Country: US (occurrence: US)
  Receive Date: 20201022
  Receipt Date: 20201022
  Transmission Date: 20210114
  Serious: No
  Sender: FDA-Public Use
  Company Number: US-SEATTLE GENETICS-2020SGN03426

PATIENT
  Sex: Female

DRUGS (5)
  1. TUKYSA [Suspect]
     Active Substance: TUCATINIB
     Indication: BREAST CANCER FEMALE
  2. HERCEPTIN [Concomitant]
     Active Substance: TRASTUZUMAB
     Indication: BREAST CANCER FEMALE
  3. CAPECITABINE. [Concomitant]
     Active Substance: CAPECITABINE
     Indication: BREAST CANCER FEMALE
  4. PROTONIX [Concomitant]
     Active Substance: PANTOPRAZOLE SODIUM
  5. MIRTAZAPINE. [Suspect]
     Active Substance: MIRTAZAPINE

REACTIONS (13)
  - Laboratory test abnormal [Unknown]
  - Constipation [Unknown]
  - Insomnia [Unknown]
  - Sleep disorder [Unknown]
  - Eye disorder [Unknown]
  - Emotional disorder [Unknown]
  - Diarrhoea [Unknown]
  - Macular degeneration [Unknown]
  - Drug interaction [Unknown]
  - Transfusion [Unknown]
  - Gastrointestinal sounds abnormal [Unknown]
  - Muscle spasms [Unknown]
  - Decreased appetite [Unknown]
